FAERS Safety Report 11826308 (Version 1)
Quarter: 2015Q4

REPORT INFORMATION
  Report Type: Spontaneous
  Country: GB (occurrence: None)
  Receive Date: 20151210
  Receipt Date: 20151210
  Transmission Date: 20160305
  Serious: Yes (Disabling, Other)
  Sender: FDA-Public Use
  Company Number: None

PATIENT
  Age: 46 Year
  Sex: Female
  Weight: 80 kg

DRUGS (9)
  1. PARACETAMOL [Concomitant]
     Active Substance: ACETAMINOPHEN
  2. TRAMADOL 50 MG ACCORD [Suspect]
     Active Substance: TRAMADOL
     Indication: ARTHRALGIA
     Dates: start: 20151209
  3. PURITANS [Concomitant]
  4. VOLTOROL [Concomitant]
  5. SUPPOSITORIES [Concomitant]
  6. TRAMADOL 50 MG ACCORD [Suspect]
     Active Substance: TRAMADOL
     Indication: BACK PAIN
     Dates: start: 20151209
  7. PARACETAMOL [Concomitant]
     Active Substance: ACETAMINOPHEN
  8. TRAMADOL. [Concomitant]
     Active Substance: TRAMADOL
  9. PURITAN [Concomitant]
     Active Substance: TRICLOSAN

REACTIONS (10)
  - Pain [None]
  - Hypoaesthesia [None]
  - Gait disturbance [None]
  - Visual impairment [None]
  - Arthropathy [None]
  - Paraesthesia [None]
  - Osteoarthritis [None]
  - Dyspnoea [None]
  - Spinal disorder [None]
  - Pruritus [None]

NARRATIVE: CASE EVENT DATE: 20151202
